FAERS Safety Report 11151935 (Version 1)
Quarter: 2015Q2

REPORT INFORMATION
  Report Type: Spontaneous
  Country: US (occurrence: US)
  Receive Date: 20150601
  Receipt Date: 20150601
  Transmission Date: 20150821
  Serious: Yes (Hospitalization, Other)
  Sender: FDA-Public Use
  Company Number: US-MALLINCKRODT-T201502677

PATIENT
  Sex: Male

DRUGS (1)
  1. GABLOFEN [Suspect]
     Active Substance: BACLOFEN
     Indication: MUSCLE SPASTICITY
     Dosage: 365.2 MCG/DAY
     Route: 037

REACTIONS (10)
  - Post procedural complication [Unknown]
  - Choking [Unknown]
  - Communication disorder [Unknown]
  - Skin abrasion [Unknown]
  - Muscle spasms [Unknown]
  - Constipation [Unknown]
  - Urosepsis [Unknown]
  - Nephrolithiasis [Unknown]
  - Dysphagia [Unknown]
  - Urinary tract infection [Unknown]

NARRATIVE: CASE EVENT DATE: 2014
